FAERS Safety Report 10840664 (Version 2)
Quarter: 2015Q1

REPORT INFORMATION
  Report Type: Spontaneous
  Country: IT (occurrence: IT)
  Receive Date: 20150220
  Receipt Date: 20150306
  Transmission Date: 20150721
  Serious: Yes (Other)
  Sender: FDA-Public Use
  Company Number: IT-ROCHE-1540731

PATIENT
  Age: 80 Year
  Sex: Female

DRUGS (1)
  1. ROCEFIN [Suspect]
     Active Substance: CEFTRIAXONE SODIUM
     Indication: BRONCHITIS
     Dosage: 1 G/10 ML POWDER AND SOLVENT FOR SOLUTION FOR INJ
     Route: 030
     Dates: start: 20150113, end: 20150113

REACTIONS (4)
  - Dyspnoea [Recovering/Resolving]
  - Chronic obstructive pulmonary disease [Recovering/Resolving]
  - Drug hypersensitivity [Recovering/Resolving]
  - Erythema [Recovering/Resolving]

NARRATIVE: CASE EVENT DATE: 20150113
